FAERS Safety Report 8444455-4 (Version None)
Quarter: 2012Q2

REPORT INFORMATION
  Report Type: 
  Country: None (occurrence: None)
  Receive Date: 20120618
  Receipt Date: 20120604
  Transmission Date: 20120825
  Serious: Yes (Hospitalization)
  Sender: FDA-Public Use
  Company Number: DE-BAYER-2012-057229

PATIENT
  Age: 73 Year
  Sex: Female

DRUGS (7)
  1. ANAGRELIDE HCL [Suspect]
     Dosage: 1 MG, UNK
     Route: 048
     Dates: start: 20061126, end: 20070316
  2. ASPIRIN [Suspect]
     Indication: ESSENTIAL THROMBOCYTHAEMIA
     Dosage: 100 MG, UNK
     Route: 048
     Dates: start: 20070601
  3. ANAGRELIDE HCL [Suspect]
     Indication: ESSENTIAL THROMBOCYTHAEMIA
     Dosage: 1.5 MG, UNK
     Route: 048
     Dates: start: 20030501
  4. ANAGRELIDE HCL [Suspect]
     Indication: ESSENTIAL THROMBOCYTHAEMIA
     Dosage: 1 MG, UNK
     Route: 048
     Dates: start: 20061116
  5. HYDROXYUREA [Suspect]
     Indication: ESSENTIAL THROMBOCYTHAEMIA
     Dosage: 1000 MG, UNK
     Route: 048
     Dates: start: 20021201, end: 20030301
  6. HYDROXYUREA [Suspect]
     Dosage: 750 MG, UNK
     Route: 048
     Dates: start: 20081203
  7. CLARITHROMYCIN [Concomitant]
     Indication: TONSILLITIS
     Dosage: 500 MG, UNK
     Route: 048
     Dates: start: 20061113

REACTIONS (6)
  - EMBOLISM ARTERIAL [None]
  - TRANSIENT ISCHAEMIC ATTACK [None]
  - CENTRAL NERVOUS SYSTEM HAEMORRHAGE [None]
  - EMBOLISM [None]
  - CEREBROVASCULAR DISORDER [None]
  - CEREBRAL ISCHAEMIA [None]
